FAERS Safety Report 13619300 (Version 1)
Quarter: 2017Q2

REPORT INFORMATION
  Report Type: Spontaneous
  Country: US (occurrence: US)
  Receive Date: 20170606
  Receipt Date: 20170606
  Transmission Date: 20170830
  Serious: No
  Sender: FDA-Public Use
  Company Number: US-AMGEN-USASP2016184497

PATIENT
  Age: 87 Year
  Sex: Female
  Weight: 80.73 kg

DRUGS (1)
  1. PROCRIT [Suspect]
     Active Substance: ERYTHROPOIETIN
     Indication: CHRONIC KIDNEY DISEASE
     Dosage: 10,000 UNITS, EVERY 21 DAYS
     Route: 065

REACTIONS (3)
  - Drug dose omission [Unknown]
  - Haemoglobin abnormal [Unknown]
  - Living in residential institution [Unknown]

NARRATIVE: CASE EVENT DATE: 201612
